FAERS Safety Report 7197315-3 (Version None)
Quarter: 2010Q4

REPORT INFORMATION
  Report Type: 
  Country: None (occurrence: None)
  Receive Date: 20101206
  Receipt Date: 20101122
  Transmission Date: 20110411
  Serious: Yes (Other)
  Sender: FDA-Public Use
  Company Number: WAES 1011USA03485

PATIENT

DRUGS (3)
  1. ISENTRESS [Suspect]
     Indication: HIV INFECTION
     Dosage: PO
     Route: 048
     Dates: start: 20100727, end: 20100824
  2. ALUVIA (LOPINAVIR (+) RITONAVIR) [Suspect]
     Indication: HIV INFECTION
     Dosage: PO
     Route: 048
     Dates: start: 20100727, end: 20100824
  3. SULFAMETHOXAZOLE AND TRIMETHOPRIM [Concomitant]

REACTIONS (6)
  - CONJUNCTIVITIS [None]
  - HEADACHE [None]
  - JAUNDICE [None]
  - ORAL CANDIDIASIS [None]
  - PYREXIA [None]
  - RASH MACULO-PAPULAR [None]
